FAERS Safety Report 12397901 (Version 1)
Quarter: 2016Q2

REPORT INFORMATION
  Report Type: Spontaneous
  Country: US (occurrence: None)
  Receive Date: 20160523
  Receipt Date: 20160523
  Transmission Date: 20160815
  Serious: No
  Sender: FDA-Public Use
  Company Number: None

PATIENT
  Age: 67 Year
  Sex: Male

DRUGS (18)
  1. ESCITALOPRAM [Concomitant]
     Active Substance: ESCITALOPRAM OXALATE
  2. GABAPENTIN. [Concomitant]
     Active Substance: GABAPENTIN
  3. TAMSULOSIN [Concomitant]
     Active Substance: TAMSULOSIN
  4. METFORMIN [Concomitant]
     Active Substance: METFORMIN HYDROCHLORIDE
  5. PERCOCET [Suspect]
     Active Substance: ACETAMINOPHEN\OXYCODONE HYDROCHLORIDE
     Indication: PAIN
     Dosage: 10/325 MG EVERY 8 HOURS PO
     Route: 048
     Dates: end: 20160328
  6. CYANOCOBALAMIN. [Concomitant]
     Active Substance: CYANOCOBALAMIN
  7. GLIMEPIRIDE. [Concomitant]
     Active Substance: GLIMEPIRIDE
  8. LISINOPRIL. [Concomitant]
     Active Substance: LISINOPRIL
  9. CLOPIDOGREL [Concomitant]
     Active Substance: CLOPIDOGREL BISULFATE
  10. COENZYME Q10 [Concomitant]
     Active Substance: UBIDECARENONE
  11. ALBUTEROL. [Concomitant]
     Active Substance: ALBUTEROL
  12. POTASSIUM CHLORIDE. [Concomitant]
     Active Substance: POTASSIUM CHLORIDE
  13. MORPHINE [Suspect]
     Active Substance: MORPHINE
     Route: 048
  14. FUROSEMIDE. [Concomitant]
     Active Substance: FUROSEMIDE
  15. LOVASTATIN. [Concomitant]
     Active Substance: LOVASTATIN
  16. BUDESONIDE/FORMOTEROL [Concomitant]
     Active Substance: BUDESONIDE\FORMOTEROL
  17. CARVEDILOL. [Concomitant]
     Active Substance: CARVEDILOL
  18. CHOLECALCIFEROL [Concomitant]
     Active Substance: CHOLECALCIFEROL

REACTIONS (14)
  - Urinary retention [None]
  - Alcohol use [None]
  - Withdrawal syndrome [None]
  - Acute kidney injury [None]
  - Fall [None]
  - Dysarthria [None]
  - Headache [None]
  - Urinary incontinence [None]
  - Anal incontinence [None]
  - Confusional state [None]
  - Dehydration [None]
  - Nephropathy toxic [None]
  - Mental status changes [None]
  - White blood cell count increased [None]

NARRATIVE: CASE EVENT DATE: 20160328
